FAERS Safety Report 5052887-X (Version None)
Quarter: 2006Q3

REPORT INFORMATION
  Report Type: 
  Country: None (occurrence: None)
  Receive Date: 20060712
  Receipt Date: 20060703
  Transmission Date: 20061208
  Serious: Yes (Other)
  Sender: FDA-Public Use
  Company Number: 2006-07-0255

PATIENT
  Age: 39 Year
  Sex: Female

DRUGS (15)
  1. PEG-INTRON [Suspect]
     Indication: HEPATITIS C
     Dates: start: 20060428
  2. RIBASPHERE [Suspect]
     Indication: HEPATITIS C
     Dosage: ORAL
     Route: 048
     Dates: start: 20060428
  3. AMITRIPTYLINE HCL [Concomitant]
  4. BENZOTROPINE MESYLATE TABLETS [Concomitant]
  5. COREG [Concomitant]
  6. CYMBALTA [Concomitant]
  7. GABITRIL FILMTAB TABLETS [Concomitant]
  8. LITHIUM CARBONATE EXTENDED RELEASE TABLET [Concomitant]
  9. PERPHENAZINE [Concomitant]
  10. POTASSIUM CHLORIDE [Concomitant]
  11. PROMETHAZINE HYDROCHLORIDE TABLETS [Concomitant]
  12. PROPRANOLOL HYDROCHLORIDE TABLETS [Concomitant]
  13. TOPAMAX TABLETS [Concomitant]
  14. TOPROL-XL [Concomitant]
  15. TRAZODONE HYDROCHLORIDE TABLETS [Concomitant]

REACTIONS (5)
  - ALOPECIA [None]
  - CONVULSION [None]
  - DEHYDRATION [None]
  - INJECTION SITE ERYTHEMA [None]
  - VOMITING [None]
